FAERS Safety Report 7444359-X (Version None)
Quarter: 2011Q2

REPORT INFORMATION
  Report Type: 
  Country: None (occurrence: None)
  Receive Date: 20110429
  Receipt Date: 20110418
  Transmission Date: 20111010
  Serious: Yes (Other)
  Sender: FDA-Public Use
  Company Number: GB-JNJFOC-20110408545

PATIENT
  Sex: Male
  Weight: 74.84 kg

DRUGS (18)
  1. RISPERDONE [Suspect]
     Route: 048
  2. RISPERDONE [Suspect]
     Route: 048
  3. RISPERDONE [Suspect]
     Route: 048
  4. RISPERDONE [Suspect]
     Route: 048
  5. RISPERDONE [Suspect]
     Route: 048
  6. RISPERDONE [Suspect]
     Route: 048
  7. RISPERDONE [Suspect]
     Route: 048
  8. RISPERDONE [Suspect]
     Route: 048
  9. RISPERDONE [Suspect]
     Route: 048
  10. RISPERDONE [Suspect]
     Route: 048
  11. RISPERDONE [Suspect]
     Indication: PRODUCT USED FOR UNKNOWN INDICATION
     Route: 048
  12. RISPERDONE [Suspect]
     Route: 048
  13. RISPERDONE [Suspect]
     Route: 048
  14. RISPERDONE [Suspect]
     Route: 048
  15. ZOPICLONE [Concomitant]
     Indication: PRODUCT USED FOR UNKNOWN INDICATION
     Route: 065
  16. RISPERDONE [Suspect]
     Route: 048
  17. RISPERDONE [Suspect]
     Route: 048
  18. RISPERDONE [Suspect]
     Route: 048

REACTIONS (4)
  - IMMOBILE [None]
  - INCONTINENCE [None]
  - FEELING ABNORMAL [None]
  - SEDATION [None]
